FAERS Safety Report 6618684-6 (Version None)
Quarter: 2010Q1

REPORT INFORMATION
  Report Type: 
  Country: None (occurrence: None)
  Receive Date: 20100308
  Receipt Date: 20100222
  Transmission Date: 20100710
  Serious: Yes (Hospitalization)
  Sender: FDA-Public Use
  Company Number: IT-ELI_LILLY_AND_COMPANY-IT201002006113

PATIENT
  Sex: Female

DRUGS (6)
  1. FORTEO [Suspect]
     Indication: OSTEOPOROSIS
     Dosage: 20 UG, DAILY (1/D)
     Route: 058
     Dates: start: 20090324, end: 20090901
  2. FORTEO [Suspect]
     Dosage: 20 UG, DAILY (1/D)
     Route: 058
     Dates: start: 20091201, end: 20091207
  3. EUTIROX [Concomitant]
     Dosage: 75 MG, UNKNOWN
     Route: 048
  4. CONGESCOR [Concomitant]
     Dosage: 5 MG, UNKNOWN
     Route: 048
  5. COUMADIN [Concomitant]
     Dosage: 5 MG, UNKNOWN
     Route: 048
  6. NATECAL [Concomitant]
     Dosage: 1200 MG, UNKNOWN
     Route: 048

REACTIONS (1)
  - GUILLAIN-BARRE SYNDROME [None]
